FAERS Safety Report 13552178 (Version 22)
Quarter: 2018Q3

REPORT INFORMATION
  Report Type: Report from Study
  Country: CA (occurrence: CA)
  Receive Date: 20170516
  Receipt Date: 20180723
  Transmission Date: 20181010
  Serious: Yes (Death, Hospitalization)
  Sender: FDA-Public Use
  Company Number: CA-HLSUS-2017-CA-000472

PATIENT
  Age: 73 Year
  Sex: Male

DRUGS (1)
  1. CLOZARIL [Suspect]
     Active Substance: CLOZAPINE
     Route: 048
     Dates: start: 20150917, end: 20180721

REACTIONS (3)
  - Neutropenia [Unknown]
  - Leukocytosis [Unknown]
  - Death [Fatal]

NARRATIVE: CASE EVENT DATE: 20170508
